FAERS Safety Report 9654448 (Version 2)
Quarter: 2013Q4

REPORT INFORMATION
  Report Type: Report from Study
  Country: CA (occurrence: CA)
  Receive Date: 20131029
  Receipt Date: 20131113
  Transmission Date: 20140711
  Serious: Yes (Death)
  Sender: FDA-Public Use
  Company Number: PHHY2013CA122225

PATIENT
  Sex: Female

DRUGS (1)
  1. ACLASTA [Suspect]
     Indication: OSTEOPOROSIS POSTMENOPAUSAL
     Dosage: 5 MG PER YEAR
     Route: 042
     Dates: start: 20121114

REACTIONS (2)
  - Lung adenocarcinoma stage IV [Fatal]
  - Concomitant disease progression [Fatal]
